FAERS Safety Report 6718162-X (Version None)
Quarter: 2010Q2

REPORT INFORMATION
  Report Type: 
  Country: None (occurrence: None)
  Receive Date: 20100510
  Receipt Date: 20100428
  Transmission Date: 20101027
  Serious: Yes (Other)
  Sender: FDA-Public Use
  Company Number: US-PFIZER INC-2010054827

PATIENT
  Sex: Male

DRUGS (4)
  1. LYRICA [Suspect]
     Indication: CONVULSION
     Dosage: 50 MG, 2X/DAY
     Route: 048
     Dates: start: 20100426, end: 20100426
  2. LYRICA [Suspect]
     Dosage: 50 MG, 3X/DAY, EVERY 8 HOURS
     Route: 051
     Dates: start: 20100427
  3. COLECALCIFEROL [Concomitant]
     Dosage: UNK
  4. VASOPRESSIN INJECTION [Concomitant]
     Dosage: UNK
     Route: 017

REACTIONS (1)
  - DEVICE OCCLUSION [None]
